FAERS Safety Report 7905865-4 (Version None)
Quarter: 2011Q4

REPORT INFORMATION
  Report Type: 
  Country: None (occurrence: None)
  Receive Date: 20111110
  Receipt Date: 20111104
  Transmission Date: 20120403
  Serious: No
  Sender: FDA-Public Use
  Company Number: US-PFIZER INC-2011270913

PATIENT
  Sex: Female

DRUGS (3)
  1. CYMBALTA [Concomitant]
     Indication: ANXIETY
     Dosage: UNK
  2. CELEBREX [Suspect]
     Dosage: UNK
     Route: 048
     Dates: start: 20110101
  3. STRATTERA [Concomitant]
     Dosage: UNK

REACTIONS (5)
  - CRYING [None]
  - PAIN [None]
  - ABDOMINAL DISCOMFORT [None]
  - SINUS DISORDER [None]
  - ANXIETY [None]
